FAERS Safety Report 5523955-0 (Version None)
Quarter: 2007Q4

REPORT INFORMATION
  Report Type: 
  Country: None (occurrence: None)
  Receive Date: 20071121
  Receipt Date: 20071115
  Transmission Date: 20080405
  Serious: Yes (Disabling, Other)
  Sender: FDA-Public Use
  Company Number: GB-ABBOTT-07P-167-0423018-00

PATIENT
  Age: 21 Year
  Sex: Female

DRUGS (3)
  1. REDUCTIL 10MG [Suspect]
     Indication: OBESITY
     Dates: start: 20050713, end: 20050829
  2. REDUCTIL 10MG [Suspect]
     Dates: start: 20070816
  3. EUGYNON [Concomitant]
     Indication: CONTRACEPTION
     Dates: start: 20070115

REACTIONS (2)
  - DEMYELINATION [None]
  - HYPOAESTHESIA FACIAL [None]
